FAERS Safety Report 4364206-2 (Version None)
Quarter: 2004Q2

REPORT INFORMATION
  Report Type: 
  Country: None (occurrence: None)
  Receive Date: 20040519
  Receipt Date: 20040503
  Transmission Date: 20050107
  Serious: No
  Sender: FDA-Public Use
  Company Number: 2004-DE-02450GD

PATIENT
  Age: 47 Year
  Sex: Female

DRUGS (6)
  1. CYCLOPHOSPHAMIDE [Suspect]
     Indication: BREAST CANCER
     Dosage: 1875 MG/ME2 (, ONCE DAILY (ON 3 CONSECUTIVE DAYS IN 4 CYCLES)),
     Dates: start: 20010101
  2. PREDNISONE [Suspect]
     Indication: PULMONARY TOXICITY
     Dosage: 100 MG, PO
     Route: 048
  3. INTERFERON GAMMA (INTERFERON GAMMA) [Suspect]
     Indication: PULMONARY TOXICITY
     Dosage: 100 MCG (, THRICE WEEKLY), SC
     Route: 058
  4. CARMUSTINE [Suspect]
     Indication: INFLAMMATORY CARCINOMA OF THE BREAST
     Dosage: 600 MG/ME2
     Dates: start: 20010101
  5. CISPLATIN [Suspect]
     Indication: INFLAMMATORY CARCINOMA OF THE BREAST
     Dosage: 165 MG/ME2
     Dates: start: 20010101
  6. METHYLPREDNISOLONE [Suspect]
     Indication: PULMONARY TOXICITY
     Dosage: 1 G, IV
     Route: 042

REACTIONS (7)
  - CHILLS [None]
  - DRUG INEFFECTIVE [None]
  - FATIGUE [None]
  - INTERSTITIAL LUNG DISEASE [None]
  - MYALGIA [None]
  - PULMONARY TOXICITY [None]
  - PYREXIA [None]
